FAERS Safety Report 23360807 (Version 1)
Quarter: 2024Q1

REPORT INFORMATION
  Report Type: Spontaneous
  Country: US (occurrence: US)
  Receive Date: 20240103
  Receipt Date: 20240103
  Transmission Date: 20240410
  Serious: Yes (Hospitalization, Other)
  Sender: FDA-Public Use
  Company Number: US-MLMSERVICE-20231213-4722546-1

PATIENT
  Age: 20 Month
  Sex: Female

DRUGS (1)
  1. DEXAMETHASONE [Suspect]
     Active Substance: DEXAMETHASONE
     Indication: Bronchial hyperreactivity
     Route: 065
     Dates: start: 20220112, end: 20220112

REACTIONS (5)
  - Lymphopenia [Unknown]
  - Varicella zoster virus infection [Recovered/Resolved]
  - Impetigo [Recovered/Resolved]
  - Infection reactivation [Recovered/Resolved]
  - Herpes zoster [Recovered/Resolved]

NARRATIVE: CASE EVENT DATE: 20220101
